FAERS Safety Report 19116829 (Version 1)
Quarter: 2021Q2

REPORT INFORMATION
  Report Type: Spontaneous
  Country: CN (occurrence: CN)
  Receive Date: 20210409
  Receipt Date: 20210409
  Transmission Date: 20210717
  Serious: Yes (Disabling)
  Sender: FDA-Public Use
  Company Number: CN-BAXTER-2021BAX006705

PATIENT
  Age: 71 Year
  Sex: Female
  Weight: 55 kg

DRUGS (15)
  1. ENDOXAN [Suspect]
     Active Substance: CYCLOPHOSPHAMIDE
     Dosage: DOSE RE?INTRODUCED, CYCLOPHOSPHAMIDE + SODIUM CHLORIDE
     Route: 041
  2. ENDOXAN [Suspect]
     Active Substance: CYCLOPHOSPHAMIDE
     Dosage: PRIOR DRUG
     Route: 065
  3. SODIUM CHLORIDE. [Suspect]
     Active Substance: SODIUM CHLORIDE
     Dosage: 4TH CYCLE OF ADJUVANT CHEMOTHERAPY WITH TC REGIMEN, SODIUM CHLORIDE + CYCLOPHOSPHAMIDE 0.8 G
     Route: 041
     Dates: start: 20210105, end: 20210105
  4. SODIUM CHLORIDE. [Suspect]
     Active Substance: SODIUM CHLORIDE
     Dosage: 1ST TO 3RD CYCLE OF ADJUVANT CHEMOTHERAPY WITH TC REGIMEN, SODIUM CHLORIDE + PACLITAXEL (ALBUMIN?BIN
     Route: 041
  5. SODIUM CHLORIDE. [Suspect]
     Active Substance: SODIUM CHLORIDE
     Dosage: 4TH CYCLE OF ADJUVANT CHEMOTHERAPY WITH TC REGIMEN, SODIUM CHLORIDE + PACLITAXEL (ALBUMIN?BINDING TY
     Route: 041
     Dates: start: 20210105, end: 20210105
  6. SODIUM CHLORIDE. [Suspect]
     Active Substance: SODIUM CHLORIDE
     Dosage: DOSE RE?INTRODUCED, SODIUM CHLORIDE + CYCLOPHOSPHAMIDE
     Route: 041
  7. DEXAMETHASONE. [Concomitant]
     Active Substance: DEXAMETHASONE
     Indication: ALLERGY PROPHYLAXIS
     Route: 065
     Dates: start: 202101
  8. DIPHENHYDRAMINE. [Concomitant]
     Active Substance: DIPHENHYDRAMINE
     Indication: ALLERGY PROPHYLAXIS
     Route: 065
     Dates: start: 202101
  9. PACLITAXEL ALBUMIN [Suspect]
     Active Substance: PACLITAXEL
     Indication: BREAST CANCER FEMALE
     Dosage: 1ST TO 3RD CYCLE OF ADJUVANT CHEMOTHERAPY WITH TC REGIMEN, PACLITAXEL (ALBUMIN?BINDING TYPE) + SODIU
     Route: 041
  10. PACLITAXEL ALBUMIN [Suspect]
     Active Substance: PACLITAXEL
     Dosage: 4TH CYCLE OF ADJUVANT CHEMOTHERAPY WITH TC REGIMEN, PACLITAXEL ALBUMIN (ALBUMIN?BINDING TYPE) + SODI
     Route: 041
     Dates: start: 20210105, end: 20210105
  11. SODIUM CHLORIDE. [Suspect]
     Active Substance: SODIUM CHLORIDE
     Indication: MEDICATION DILUTION
     Dosage: 1ST TO 3RD CYCLE OF ADJUVANT CHEMOTHERAPY WITH TC REGIMEN, SODIUM CHLORIDE + CYCLOPHOSPHAMIDE
     Route: 041
  12. ENDOXAN [Suspect]
     Active Substance: CYCLOPHOSPHAMIDE
     Indication: BREAST CANCER FEMALE
     Dosage: 1ST TO 3RD CYCLE OF ADJUVANT CHEMOTHERAPY WITH TC REGIMEN, CYCLOPHOSPHAMIDE + SODIUM CHLORIDE
     Route: 041
  13. PACLITAXEL ALBUMIN [Suspect]
     Active Substance: PACLITAXEL
     Dosage: DOSE RE?INTRODUCED, PACLITAXEL (ALBUMIN?BINDING TYPE) + SODIUM CHLORIDE
     Route: 041
  14. ENDOXAN [Suspect]
     Active Substance: CYCLOPHOSPHAMIDE
     Dosage: 4TH CYCLE OF ADJUVANT CHEMOTHERAPY WITH TC REGIMEN, CYCLOPHOSPHAMIDE + SODIUM CHLORIDE 100ML
     Route: 041
     Dates: start: 20210105, end: 20210105
  15. SODIUM CHLORIDE. [Suspect]
     Active Substance: SODIUM CHLORIDE
     Dosage: DOSE RE?INTRODUCED, SODIUM CHLORIDE + PACLITAXEL (ALBUMIN?BINDING TYPE)
     Route: 041

REACTIONS (3)
  - Gastrointestinal disorder [Recovering/Resolving]
  - Dysphagia [Recovering/Resolving]
  - Gastrointestinal disorder [Recovered/Resolved]

NARRATIVE: CASE EVENT DATE: 20210105
